FAERS Safety Report 7901209-2 (Version None)
Quarter: 2011Q4

REPORT INFORMATION
  Report Type: 
  Country: None (occurrence: None)
  Receive Date: 20111108
  Receipt Date: 20111024
  Transmission Date: 20120403
  Serious: Yes (Hospitalization, Other)
  Sender: FDA-Public Use
  Company Number: PHFR2011GB03615

PATIENT
  Sex: Male

DRUGS (2)
  1. CLOZARIL [Suspect]
     Dosage: 600 MG, UNK
     Route: 048
     Dates: start: 20040101, end: 20110611
  2. CLOZARIL [Suspect]
     Indication: SCHIZOPHRENIA
     Route: 048
     Dates: start: 19941208

REACTIONS (5)
  - CONVULSION [None]
  - BLOOD POTASSIUM DECREASED [None]
  - HYPONATRAEMIA [None]
  - THIRST [None]
  - CONFUSIONAL STATE [None]
